FAERS Safety Report 16584260 (Version 5)
Quarter: 2021Q4

REPORT INFORMATION
  Report Type: Spontaneous
  Country: GB (occurrence: GB)
  Receive Date: 20190717
  Receipt Date: 20211222
  Transmission Date: 20220303
  Serious: Yes (Life-Threatening, Hospitalization, Disabling, Other)
  Sender: FDA-Public Use
  Company Number: GB-PFIZER INC-2011207736

PATIENT
  Age: 31 Year
  Sex: Female
  Weight: 63.5 kg

DRUGS (28)
  1. LORAZEPAM [Suspect]
     Active Substance: LORAZEPAM
     Indication: Sedation
     Dosage: 1 MG, 4X/DAY
     Route: 048
     Dates: start: 20110224, end: 20110410
  2. LORAZEPAM [Suspect]
     Active Substance: LORAZEPAM
     Indication: Muscle spasms
     Dosage: 1 MG, 4X/DAY
     Route: 048
     Dates: start: 20110523, end: 20110627
  3. MIRTAZAPINE [Interacting]
     Active Substance: MIRTAZAPINE
     Indication: Depression
     Dosage: 30 MG, CYCLIC
     Route: 048
     Dates: start: 20100923, end: 20101108
  4. MIRTAZAPINE [Interacting]
     Active Substance: MIRTAZAPINE
     Dosage: UNK
     Dates: start: 20101007, end: 20101012
  5. PAROXETINE HYDROCHLORIDE [Interacting]
     Active Substance: PAROXETINE HYDROCHLORIDE
     Indication: Depression
     Dosage: 60 MG, 3X/DAY
     Route: 048
     Dates: start: 19990801, end: 201105
  6. PAROXETINE HYDROCHLORIDE [Interacting]
     Active Substance: PAROXETINE HYDROCHLORIDE
     Indication: Post-traumatic stress disorder
     Dosage: 40 MG, 1X/DAY
     Route: 048
     Dates: start: 201105, end: 20110706
  7. CLONAZEPAM [Interacting]
     Active Substance: CLONAZEPAM
     Indication: Sedation
     Dosage: UNK UNSURE
     Route: 048
     Dates: start: 20110224, end: 20110410
  8. PROCYCLIDINE [Interacting]
     Active Substance: PROCYCLIDINE
     Indication: Extrapyramidal disorder
     Dosage: 5 MG
     Route: 048
     Dates: start: 1995, end: 1996
  9. PROCYCLIDINE [Interacting]
     Active Substance: PROCYCLIDINE
     Indication: Psychotic disorder
     Dosage: 15 MG, 1X/DAY
     Route: 048
     Dates: start: 20110503, end: 20110510
  10. PROCYCLIDINE [Interacting]
     Active Substance: PROCYCLIDINE
     Indication: Oculogyric crisis
     Dosage: 20 MG
     Dates: start: 20110324, end: 20110506
  11. PROCYCLIDINE [Interacting]
     Active Substance: PROCYCLIDINE
     Dosage: UNK
     Dates: start: 20110415
  12. PROCYCLIDINE [Interacting]
     Active Substance: PROCYCLIDINE
     Dosage: 5 MG, 1X/DAY
     Dates: start: 20110503, end: 20110510
  13. OMEPRAZOLE [Interacting]
     Active Substance: OMEPRAZOLE
     Indication: Dyspepsia
     Dosage: 20 MG, 1X/DAY
     Dates: start: 20110525
  14. QUETIAPINE [Interacting]
     Active Substance: QUETIAPINE
     Indication: Psychotic disorder
     Dosage: 300 MG, UNK
     Route: 048
     Dates: start: 20110224, end: 20110506
  15. QUETIAPINE [Interacting]
     Active Substance: QUETIAPINE
     Indication: Psychotic disorder
  16. TRAMADOL [Interacting]
     Active Substance: TRAMADOL
     Indication: Analgesic therapy
     Dosage: UNSURE
     Route: 048
     Dates: start: 20081201, end: 20101210
  17. TRAMADOL [Interacting]
     Active Substance: TRAMADOL
     Indication: Neck pain
  18. TRAMADOL [Interacting]
     Active Substance: TRAMADOL
     Indication: Back pain
  19. AMITRIPTYLINE [Interacting]
     Active Substance: AMITRIPTYLINE
     Indication: Muscle spasms
     Dosage: 25 MG, 1X/DAY AT NIGHT
     Dates: start: 20110810
  20. AMITRIPTYLINE [Interacting]
     Active Substance: AMITRIPTYLINE
     Indication: Muscle spasms
  21. AMITRIPTYLINE [Interacting]
     Active Substance: AMITRIPTYLINE
     Indication: Neuralgia
  22. CODEINE [Interacting]
     Active Substance: CODEINE
     Indication: Analgesic therapy
     Dosage: UNSURE
     Route: 048
     Dates: start: 20110615, end: 20110723
  23. CODEINE [Interacting]
     Active Substance: CODEINE
     Dosage: UNK
     Route: 048
     Dates: start: 2002, end: 2002
  24. CODEINE [Interacting]
     Active Substance: CODEINE
     Dosage: UNK
     Route: 048
     Dates: start: 2008, end: 2008
  25. DOMPERIDONE [Interacting]
     Active Substance: DOMPERIDONE
     Dosage: UNK
  26. DIAZEPAM [Suspect]
     Active Substance: DIAZEPAM
     Indication: Muscle spasms
     Dosage: 5 MG, 4X/DAY
     Dates: start: 20110725, end: 20110725
  27. DIAZEPAM [Suspect]
     Active Substance: DIAZEPAM
     Indication: Neuralgia
     Dosage: 2-2-4
  28. PHOSPHORUS [Interacting]
     Active Substance: PHOSPHORUS
     Dosage: UNK

REACTIONS (86)
  - Maternal exposure during pregnancy [Unknown]
  - Agitation [Unknown]
  - Anxiety [Unknown]
  - Decreased appetite [Unknown]
  - Hallucinations, mixed [Unknown]
  - Blood sodium decreased [Unknown]
  - Cyanosis [Unknown]
  - Vision blurred [Unknown]
  - Cogwheel rigidity [Unknown]
  - Contusion [Unknown]
  - Seizure [Unknown]
  - Delirium [Unknown]
  - Depression [Unknown]
  - Dissociation [Not Recovered/Not Resolved]
  - Diarrhoea [Unknown]
  - Dyspnoea [Unknown]
  - Disorientation [Not Recovered/Not Resolved]
  - Dizziness [Unknown]
  - Drooling [Unknown]
  - Drug interaction [Unknown]
  - Toxicity to various agents [Unknown]
  - Dyskinesia [Unknown]
  - Tinnitus [Unknown]
  - Emotional disorder [Unknown]
  - Swelling face [Unknown]
  - Feeling of despair [Unknown]
  - Derealisation [Not Recovered/Not Resolved]
  - Pyrexia [Unknown]
  - Gastric pH decreased [Unknown]
  - Headache [Unknown]
  - Heart rate increased [Unknown]
  - Incontinence [Not Recovered/Not Resolved]
  - Feeling jittery [Unknown]
  - Arthralgia [Unknown]
  - Sensory loss [Unknown]
  - Mania [Unknown]
  - Menstrual disorder [Unknown]
  - Disturbance in attention [Unknown]
  - Mood swings [Unknown]
  - Muscle disorder [Unknown]
  - Muscle spasms [Not Recovered/Not Resolved]
  - Neuroleptic malignant syndrome [Unknown]
  - Nightmare [Unknown]
  - Hypoaesthesia [Not Recovered/Not Resolved]
  - Eye pain [Unknown]
  - Paraesthesia [Unknown]
  - Pruritus [Unknown]
  - Psychotic disorder [Unknown]
  - Mydriasis [Unknown]
  - Restlessness [Unknown]
  - Schizophrenia [Unknown]
  - Serotonin syndrome [Not Recovered/Not Resolved]
  - Illness [Unknown]
  - Skin discolouration [Not Recovered/Not Resolved]
  - Sleep disorder [Unknown]
  - Aphasia [Not Recovered/Not Resolved]
  - Parosmia [Unknown]
  - Suicidal ideation [Not Recovered/Not Resolved]
  - Hyperhidrosis [Unknown]
  - H1N1 influenza [Unknown]
  - Tremor [Not Recovered/Not Resolved]
  - Balance disorder [Unknown]
  - Urinary retention [Unknown]
  - Visual impairment [Unknown]
  - Vomiting [Unknown]
  - Gait disturbance [Unknown]
  - Asthenia [Unknown]
  - Drug withdrawal syndrome [Unknown]
  - Dystonia [Unknown]
  - Eye pain [Unknown]
  - Feeling of body temperature change [Unknown]
  - Musculoskeletal stiffness [Unknown]
  - Hypoaesthesia oral [Unknown]
  - Pallor [Unknown]
  - Paralysis [Unknown]
  - Muscle rigidity [Unknown]
  - Swollen tongue [Unknown]
  - Tachycardia [Unknown]
  - Fatigue [Unknown]
  - Premature labour [Unknown]
  - Muscle spasms [Unknown]
  - Speech disorder [Unknown]
  - Restless legs syndrome [Unknown]
  - Drug ineffective [Unknown]
  - Limb injury [Unknown]
  - Somnolence [Unknown]

NARRATIVE: CASE EVENT DATE: 20030101
